FAERS Safety Report 15426192 (Version 1)
Quarter: 2018Q3

REPORT INFORMATION
  Report Type: Spontaneous
  Country: US (occurrence: US)
  Receive Date: 20180925
  Receipt Date: 20180925
  Transmission Date: 20181010
  Serious: Yes (Other)
  Sender: FDA-Public Use
  Company Number: US-TEVA-2018-US-956690

PATIENT
  Age: 80 Year
  Sex: Male

DRUGS (3)
  1. XTANDI [Suspect]
     Active Substance: ENZALUTAMIDE
     Indication: PROSTATE CANCER
     Dosage: 120 MILLIGRAM DAILY;
     Route: 048
     Dates: start: 20160405, end: 20161104
  2. LEUPROLIDE ACETATE. [Suspect]
     Active Substance: LEUPROLIDE ACETATE
     Indication: PRODUCT USED FOR UNKNOWN INDICATION
     Dosage: EVERY 4 MONTHS
     Route: 065
  3. XTANDI [Suspect]
     Active Substance: ENZALUTAMIDE
     Dosage: 160 MILLIGRAM DAILY;
     Route: 048
     Dates: start: 20161104, end: 201705

REACTIONS (13)
  - Confusional state [Unknown]
  - Arthralgia [Unknown]
  - Head discomfort [Unknown]
  - Underdose [Unknown]
  - Cataract [Unknown]
  - Hypotension [Unknown]
  - Mobility decreased [Unknown]
  - Somnolence [Recovered/Resolved]
  - Prostatic specific antigen increased [Unknown]
  - Dizziness [Unknown]
  - Asthenia [Recovered/Resolved]
  - Hot flush [Unknown]
  - Fatigue [Unknown]

NARRATIVE: CASE EVENT DATE: 20160412
